FAERS Safety Report 9914912 (Version 2)
Quarter: 2014Q1

REPORT INFORMATION
  Report Type: Spontaneous
  Country: US (occurrence: US)
  Receive Date: 20140220
  Receipt Date: 20140304
  Transmission Date: 20141002
  Serious: No
  Sender: FDA-Public Use
  Company Number: US-PFIZER INC-2014046295

PATIENT
  Age: 83 Year
  Sex: Female

DRUGS (5)
  1. ACCUPRIL [Suspect]
     Dosage: UNK
  2. BACITRACIN [Suspect]
     Dosage: UNK
  3. LEVOQUIN [Suspect]
     Dosage: UNK
  4. CIPROFLOXIN [Suspect]
     Dosage: UNK
  5. CECLOR [Suspect]
     Dosage: UNK

REACTIONS (1)
  - Drug hypersensitivity [Unknown]
